FAERS Safety Report 9443292 (Version 7)
Quarter: 2013Q4

REPORT INFORMATION
  Report Type: Spontaneous
  Country: US (occurrence: US)
  Receive Date: 20130806
  Receipt Date: 20131203
  Transmission Date: 20140711
  Serious: Yes (Hospitalization, Other)
  Sender: FDA-Public Use
  Company Number: US-BAXTER-2013BAX030634

PATIENT
  Age: 28 Year
  Sex: Female

DRUGS (4)
  1. DIANEAL LOW CALCIUM [Suspect]
     Indication: RENAL FAILURE CHRONIC
     Route: 033
  2. DIANEAL LOW CALCIUM [Suspect]
     Indication: RENAL FAILURE CHRONIC
     Route: 033
  3. DIANEAL LOW CALCIUM [Suspect]
     Indication: RENAL FAILURE CHRONIC
     Route: 033
  4. RENVELA [Concomitant]
     Indication: CALCIPHYLAXIS

REACTIONS (5)
  - Peripheral artery thrombosis [Recovering/Resolving]
  - Ischaemic ulcer [Recovering/Resolving]
  - Abasia [Recovering/Resolving]
  - Calciphylaxis [Unknown]
  - Gangrene [Unknown]
